FAERS Safety Report 13269762 (Version 1)
Quarter: 2017Q1

REPORT INFORMATION
  Report Type: Spontaneous
  Country: US (occurrence: US)
  Receive Date: 20170224
  Receipt Date: 20170224
  Transmission Date: 20170428
  Serious: Yes (Other)
  Sender: FDA-Public Use
  Company Number: US-BRISTOL-MYERS SQUIBB COMPANY-BMS-2017-014220

PATIENT
  Sex: Female
  Weight: 72.57 kg

DRUGS (1)
  1. ELIQUIS [Suspect]
     Active Substance: APIXABAN
     Indication: DEEP VEIN THROMBOSIS
     Dosage: 5 MG, BID
     Route: 048
     Dates: start: 20161110

REACTIONS (7)
  - Movement disorder [Unknown]
  - Arthralgia [Unknown]
  - Gait disturbance [Unknown]
  - Muscle tightness [Unknown]
  - Muscular weakness [Unknown]
  - Alopecia [Unknown]
  - Prescribed underdose [Unknown]
